FAERS Safety Report 11383309 (Version 1)
Quarter: 2015Q3

REPORT INFORMATION
  Report Type: Spontaneous
  Country: US (occurrence: US)
  Receive Date: 20150814
  Receipt Date: 20150814
  Transmission Date: 20151125
  Serious: Yes (Other)
  Sender: FDA-Public Use
  Company Number: US-AMGEN-USASP2015081142

PATIENT
  Age: 57 Year
  Sex: Male

DRUGS (1)
  1. NPLATE [Suspect]
     Active Substance: ROMIPLOSTIM
     Indication: IMMUNE THROMBOCYTOPENIC PURPURA
     Dosage: UNK
     Route: 065
     Dates: start: 20150101

REACTIONS (5)
  - Abdominal distension [Unknown]
  - Muscle strain [Unknown]
  - Muscle tightness [Unknown]
  - Fatigue [Unknown]
  - Diabetes mellitus [Unknown]
